FAERS Safety Report 4912052-0 (Version None)
Quarter: 2006Q1

REPORT INFORMATION
  Report Type: 
  Country: None (occurrence: None)
  Receive Date: 20060213
  Receipt Date: 20060202
  Transmission Date: 20060701
  Serious: Yes (Other)
  Sender: FDA-Public Use
  Company Number: 2006018307

PATIENT
  Age: 37 Year
  Sex: Male

DRUGS (2)
  1. SERTRALINE [Suspect]
     Indication: DEPRESSION
     Dosage: 50 MG
  2. CYCLOSPORINE [Suspect]
     Indication: DERMATITIS ATOPIC
     Dosage: 3 MG/KG (1 IN 1 D)

REACTIONS (6)
  - DECREASED APPETITE [None]
  - DRUG INTERACTION [None]
  - MUSCLE SPASMS [None]
  - MYOPATHY TOXIC [None]
  - SLEEP DISORDER [None]
  - TREMOR [None]
